FAERS Safety Report 15632501 (Version 1)
Quarter: 2018Q4

REPORT INFORMATION
  Report Type: Spontaneous
  Country: US (occurrence: US)
  Receive Date: 20181119
  Receipt Date: 20181119
  Transmission Date: 20190205
  Serious: Yes (Other)
  Sender: FDA-Public Use
  Company Number: None

PATIENT
  Age: 46 Year
  Sex: Female
  Weight: 57.6 kg

DRUGS (9)
  1. MAGNESIUM [Concomitant]
     Active Substance: MAGNESIUM
  2. GABAPENTIN. [Concomitant]
     Active Substance: GABAPENTIN
  3. ZOFRAN [Concomitant]
     Active Substance: ONDANSETRON HYDROCHLORIDE
  4. AIMOVIG [Suspect]
     Active Substance: ERENUMAB-AOOE
     Indication: MIGRAINE
     Dosage: ?          OTHER FREQUENCY:MONTHLY;?
     Route: 030
     Dates: start: 20180928
  5. MULTIVITAMIN [Concomitant]
     Active Substance: VITAMINS
  6. SUMITRPINE [Concomitant]
  7. KLONOPIN [Concomitant]
     Active Substance: CLONAZEPAM
  8. PROPANOL [Concomitant]
     Active Substance: PROPRANOLOL HYDROCHLORIDE
  9. TORADOL [Concomitant]
     Active Substance: KETOROLAC TROMETHAMINE

REACTIONS (1)
  - Constipation [None]

NARRATIVE: CASE EVENT DATE: 20181012
